FAERS Safety Report 4625665-0 (Version None)
Quarter: 2005Q1

REPORT INFORMATION
  Report Type: 
  Country: None (occurrence: None)
  Receive Date: 20050330
  Receipt Date: 20050314
  Transmission Date: 20050727
  Serious: Yes (Other)
  Sender: FDA-Public Use
  Company Number: DE_050315484

PATIENT
  Age: 49 Year
  Sex: Female

DRUGS (2)
  1. CYMBALTA [Suspect]
     Indication: DEPRESSION
     Dosage: 60 MG DAY
     Dates: start: 20050310, end: 20050312
  2. CYMBALTA [Suspect]
     Indication: HEADACHE
     Dosage: 60 MG DAY
     Dates: start: 20050310, end: 20050312

REACTIONS (4)
  - AGITATION [None]
  - CHILLS [None]
  - TREMOR [None]
  - VOMITING [None]
